FAERS Safety Report 20478865 (Version 3)
Quarter: 2022Q2

REPORT INFORMATION
  Report Type: Spontaneous
  Country: PT (occurrence: PT)
  Receive Date: 20220216
  Receipt Date: 20220407
  Transmission Date: 20220721
  Serious: Yes (Other)
  Sender: FDA-Public Use
  Company Number: PT-NOVARTISPH-NVSC2022PT034339

PATIENT
  Age: 74 Year
  Sex: Male

DRUGS (1)
  1. BEOVU [Suspect]
     Active Substance: BROLUCIZUMAB-DBLL
     Indication: Product used for unknown indication
     Dosage: UNK
     Route: 065
     Dates: start: 20210805

REACTIONS (16)
  - Cerebrovascular accident [Unknown]
  - Cerebral small vessel ischaemic disease [Unknown]
  - Hemiparesis [Recovered/Resolved]
  - Cerebral artery occlusion [Recovered/Resolved]
  - Ischaemic stroke [Recovered/Resolved]
  - Sinusitis [Unknown]
  - Red blood cell count increased [Unknown]
  - Mean cell volume decreased [Unknown]
  - Red cell distribution width increased [Unknown]
  - Erythroblast count abnormal [Unknown]
  - Haematocrit decreased [Unknown]
  - Blood folate decreased [Unknown]
  - High density lipoprotein decreased [Unknown]
  - N-terminal prohormone brain natriuretic peptide increased [Unknown]
  - Protein total decreased [Unknown]
  - Blood albumin decreased [Unknown]

NARRATIVE: CASE EVENT DATE: 20210828
